FAERS Safety Report 19964042 (Version 1)
Quarter: 2021Q4

REPORT INFORMATION
  Report Type: Spontaneous
  Country: CN (occurrence: CN)
  Receive Date: 20211018
  Receipt Date: 20211018
  Transmission Date: 20220304
  Serious: Yes (Hospitalization, Other)
  Sender: FDA-Public Use
  Company Number: CN-FRESENIUS KABI-FK202111068

PATIENT
  Age: 18 Year
  Sex: Female

DRUGS (14)
  1. PROPOFOL [Suspect]
     Active Substance: PROPOFOL
     Indication: Analgesic therapy
     Dosage: 0.6 G CONTINOUS MICROPUMP INTRAVENOUS INJECTION
  2. PROPOFOL [Suspect]
     Active Substance: PROPOFOL
     Indication: Sedative therapy
  3. MIDAZOLAM [Suspect]
     Active Substance: MIDAZOLAM
     Indication: Analgesic therapy
     Dosage: 50 MG CONTINOUS MICROPUMP INTRAVENOUS INJECTION
  4. MIDAZOLAM [Suspect]
     Active Substance: MIDAZOLAM
     Indication: Sedative therapy
  5. HEPARIN SODIUM [Concomitant]
     Active Substance: HEPARIN SODIUM
     Indication: Anticoagulant therapy
     Dosage: 1250 IU CONTINUOUS MICROPUMP INTRAVENOUS INFUSION
  6. MEROPENEM SODIUM CARBONATE [Concomitant]
     Indication: Prophylaxis
     Dosage: 1.0 G, Q 8 H, IVGTT
  7. LINEZOLID [Concomitant]
     Active Substance: LINEZOLID
     Indication: Prophylaxis
     Dosage: 0.6 G, Q 12 H, IVGTT
  8. METHYLPREDNISOLONE [Concomitant]
     Active Substance: METHYLPREDNISOLONE
     Indication: Infection
     Dosage: 160 MG, QD, IVGTT
  9. UNSPECIFIED INGREDIENT [Concomitant]
     Active Substance: UNSPECIFIED INGREDIENT
     Indication: Immunology test
     Dosage: 20 G, QD, IVGTT
  10. UNSPECIFIED INGREDIENT [Concomitant]
     Active Substance: UNSPECIFIED INGREDIENT
     Indication: Fluid imbalance
  11. GLUTATHIONE [Concomitant]
     Active Substance: GLUTATHIONE
     Indication: Prophylaxis
     Dosage: 2400 MG, QD, IVGTT
  12. MAGNESIUM ISOGLYCYRRHIZINATE [Concomitant]
     Active Substance: MAGNESIUM ISOGLYCYRRHIZINATE
     Indication: Prophylaxis
     Dosage: 40 ML, QD, IVGTT
  13. ADENOSINE [Concomitant]
     Active Substance: ADENOSINE
     Indication: Blood bilirubin increased
     Dosage: 1 G, QD, IVGTT
  14. ORNITHINE ASPARTATE [Concomitant]
     Active Substance: ORNITHINE ASPARTATE
     Indication: Ammonia increased
     Dosage: 10 G, QD, IVGTT)

REACTIONS (1)
  - Coma [Recovered/Resolved]
